FAERS Safety Report 8138994-3 (Version None)
Quarter: 2012Q1

REPORT INFORMATION
  Report Type: 
  Country: None (occurrence: None)
  Receive Date: 20120215
  Receipt Date: 20120210
  Transmission Date: 20120608
  Serious: No
  Sender: FDA-Public Use
  Company Number: US-PFIZER INC-2012036960

PATIENT
  Age: 51 Year
  Sex: Male

DRUGS (3)
  1. NEURONTIN [Suspect]
     Indication: NEURALGIA
     Dosage: 8 (600MG) PER DAY
  2. NEURONTIN [Suspect]
     Dosage: 2 (600MG) TABLETS PER DAY
  3. NEURONTIN [Suspect]
     Dosage: 6 (600MG) TABLETS PER DAY

REACTIONS (2)
  - PAIN [None]
  - RASH [None]
